FAERS Safety Report 16714756 (Version 1)
Quarter: 2019Q4

REPORT INFORMATION
  Report Type: Spontaneous
  Country: US (occurrence: US)
  Receive Date: 20190816
  Receipt Date: 20190816
  Transmission Date: 20200122
  Serious: Yes (Other)
  Sender: FDA-Public Use
  Company Number: None

PATIENT
  Age: 49 Year
  Sex: Female

DRUGS (1)
  1. MIRENA [Suspect]
     Active Substance: LEVONORGESTREL

REACTIONS (16)
  - Loss of libido [None]
  - Decreased interest [None]
  - Gastrointestinal disorder [None]
  - Abdominal pain [None]
  - Asthenia [None]
  - Peripheral swelling [None]
  - Breast tenderness [None]
  - Chest pain [None]
  - Pain [None]
  - Weight increased [None]
  - Lethargy [None]
  - Joint swelling [None]
  - Back pain [None]
  - Abdominal distension [None]
  - Depression [None]
  - Breast pain [None]

NARRATIVE: CASE EVENT DATE: 20190103
